FAERS Safety Report 6170876-9 (Version None)
Quarter: 2009Q2

REPORT INFORMATION
  Report Type: 
  Country: None (occurrence: None)
  Receive Date: 20090427
  Receipt Date: 20090415
  Transmission Date: 20091009
  Serious: Yes (Other)
  Sender: FDA-Public Use
  Company Number: AE-2009-017

PATIENT
  Sex: Female

DRUGS (6)
  1. METFORMIN HCL [Suspect]
     Indication: DIABETES MELLITUS
     Dosage: 500MG,TID, ORAL
     Route: 048
  2. SIMVASTATIN [Suspect]
     Dosage: 10MG
  3. PARACETAMOL [Concomitant]
  4. CALCICHEW (CALCIUM CARBONATE, CHOLECALCIFEROL) [Concomitant]
  5. FOSAVANCE (ALENDRONIC ACID, CHOLECALCIFEROL) [Concomitant]
  6. GAVISCON (ALGINIC ACID, ALUMINIUM HYDROXIDE,CALCIUM CARBONATE, MAGNESS [Concomitant]

REACTIONS (2)
  - ALOPECIA [None]
  - DIARRHOEA [None]
